FAERS Safety Report 15327046 (Version 1)
Quarter: 2018Q3

REPORT INFORMATION
  Report Type: Spontaneous
  Country: AU (occurrence: AU)
  Receive Date: 20180828
  Receipt Date: 20180828
  Transmission Date: 20181010
  Serious: Yes (Other)
  Sender: FDA-Public Use
  Company Number: AU-009507513-2004-123100-NL

PATIENT
  Age: 25 Year
  Sex: Female
  Weight: 60 kg

DRUGS (2)
  1. TEGRETOL [Interacting]
     Active Substance: CARBAMAZEPINE
     Indication: EPILEPSY
     Dosage: UNIT DOSE: 200 MG
  2. IMPLANON [Suspect]
     Active Substance: ETONOGESTREL
     Indication: CONTRACEPTION
     Dosage: CONTINUING: NO
     Route: 058
     Dates: start: 20030214, end: 20041209

REACTIONS (3)
  - Abortion induced [Unknown]
  - Pregnancy with implant contraceptive [Unknown]
  - Drug interaction [Unknown]

NARRATIVE: CASE EVENT DATE: 20041208
